FAERS Safety Report 10693394 (Version 1)
Quarter: 2015Q1

REPORT INFORMATION
  Report Type: Spontaneous
  Country: GR (occurrence: GR)
  Receive Date: 20150106
  Receipt Date: 20150106
  Transmission Date: 20150720
  Serious: Yes (Hospitalization)
  Sender: FDA-Public Use
  Company Number: GR-JNJFOC-20150100252

PATIENT
  Age: 74 Year
  Sex: Male

DRUGS (1)
  1. SIMPONI [Suspect]
     Active Substance: GOLIMUMAB
     Indication: COLITIS ULCERATIVE
     Route: 058
     Dates: start: 20141216

REACTIONS (2)
  - Embolism [Not Recovered/Not Resolved]
  - Pneumonia [Not Recovered/Not Resolved]
